FAERS Safety Report 12977290 (Version 1)
Quarter: 2016Q4

REPORT INFORMATION
  Report Type: Other
  Country: US (occurrence: US)
  Receive Date: 20161128
  Receipt Date: 20161128
  Transmission Date: 20170207
  Serious: Yes (Hospitalization)
  Sender: FDA-Public Use
  Company Number: US-VELOXIS PHARMACEUTICALS-1060082

PATIENT
  Age: 80 Year
  Sex: Male

DRUGS (2)
  1. FLUCONAZOLE. [Suspect]
     Active Substance: FLUCONAZOLE
  2. ENVARSUS XR [Suspect]
     Active Substance: TACROLIMUS
     Indication: STEM CELL TRANSPLANT

REACTIONS (4)
  - Histiocytosis haematophagic [Recovered/Resolved]
  - Varicella zoster virus infection [Recovered/Resolved]
  - Off label use [Unknown]
  - Herpes simplex [Unknown]
